FAERS Safety Report 7411467-9 (Version None)
Quarter: 2011Q2

REPORT INFORMATION
  Report Type: 
  Country: None (occurrence: None)
  Receive Date: 20110408
  Receipt Date: 20110408
  Transmission Date: 20111010
  Serious: Yes (Hospitalization)
  Sender: FDA-Public Use
  Company Number: None

PATIENT
  Age: 61 Year
  Sex: Male
  Weight: 96 kg

DRUGS (1)
  1. LITHIUM CARBONATE [Suspect]
     Indication: BIPOLAR I DISORDER
     Dosage: 900 MG HS PO
     Route: 048
     Dates: start: 20090804, end: 20100926

REACTIONS (7)
  - RENAL FAILURE ACUTE [None]
  - URINARY INCONTINENCE [None]
  - FAECAL INCONTINENCE [None]
  - TREMOR [None]
  - AMNESIA [None]
  - CONFUSIONAL STATE [None]
  - MENTAL STATUS CHANGES [None]
